FAERS Safety Report 11051003 (Version 1)
Quarter: 2015Q2

REPORT INFORMATION
  Report Type: Spontaneous
  Country: US (occurrence: US)
  Receive Date: 20150421
  Receipt Date: 20150421
  Transmission Date: 20150821
  Serious: Yes (Hospitalization)
  Sender: FDA-Public Use
  Company Number: US-BEH-2015050212

PATIENT
  Age: 69 Year
  Sex: Male
  Weight: 69 kg

DRUGS (23)
  1. ADVAIR HFA [Concomitant]
     Active Substance: FLUTICASONE PROPIONATE\SALMETEROL XINAFOATE
     Dosage: 500-50
  2. CRESTOR [Concomitant]
     Active Substance: ROSUVASTATIN CALCIUM
  3. FLOMAX [Concomitant]
     Active Substance: TAMSULOSIN HYDROCHLORIDE
  4. LIDOCAINE/PRILOCAINE [Concomitant]
  5. SPIRIVA [Concomitant]
     Active Substance: TIOTROPIUM BROMIDE MONOHYDRATE
  6. HIZENTRA [Suspect]
     Active Substance: HUMAN IMMUNOGLOBULIN G
     Indication: IMMUNODEFICIENCY COMMON VARIABLE
     Route: 058
  7. VITAMIN D3 [Concomitant]
     Active Substance: CHOLECALCIFEROL
  8. PERCOCET [Concomitant]
     Active Substance: ACETAMINOPHEN\OXYCODONE HYDROCHLORIDE
     Dosage: 10-325 MG
  9. CARVEDILOL. [Concomitant]
     Active Substance: CARVEDILOL
  10. ADVIL [Concomitant]
     Active Substance: IBUPROFEN
     Dosage: 500-50
  11. INDERAL [Concomitant]
     Active Substance: PROPRANOLOL HYDROCHLORIDE
  12. MUCINEX [Concomitant]
     Active Substance: GUAIFENESIN
  13. EPIPEN [Concomitant]
     Active Substance: EPINEPHRINE
  14. CALCIUM VITAMIN D3 [Concomitant]
  15. LOSARTAN POTASSIUM. [Concomitant]
     Active Substance: LOSARTAN POTASSIUM
  16. DIPHENHYDRAMINE [Concomitant]
     Active Substance: DIPHENHYDRAMINE
  17. LIDOCAINE 4% [Concomitant]
  18. TEMAZEPAM. [Concomitant]
     Active Substance: TEMAZEPAM
  19. DESYREL [Concomitant]
     Active Substance: TRAZODONE HYDROCHLORIDE
  20. CENTRUM MULTIVITAMIN [Concomitant]
  21. RANEXA [Concomitant]
     Active Substance: RANOLAZINE
  22. DOXYCYCLINE HYCLATE. [Concomitant]
     Active Substance: DOXYCYCLINE HYCLATE
  23. ALBUTEROL. [Concomitant]
     Active Substance: ALBUTEROL
     Dosage: 5 MG/ML

REACTIONS (6)
  - Chills [Unknown]
  - Pain [Unknown]
  - Nausea [Unknown]
  - Diarrhoea [Unknown]
  - Drug dose omission [Unknown]
  - Colitis [Unknown]

NARRATIVE: CASE EVENT DATE: 20150331
